FAERS Safety Report 7325735-2 (Version None)
Quarter: 2011Q1

REPORT INFORMATION
  Report Type: 
  Country: None (occurrence: None)
  Receive Date: 20110302
  Receipt Date: 20110218
  Transmission Date: 20110831
  Serious: Yes (Hospitalization, Other)
  Sender: FDA-Public Use
  Company Number: US-BAYER-2011-016518

PATIENT
  Sex: Female
  Weight: 82 kg

DRUGS (3)
  1. ALEVE (CAPLET) [Suspect]
     Indication: ARTHRITIS
     Dosage: 1 DF, QD
     Route: 048
     Dates: start: 20091001, end: 20101001
  2. MULTI-VITAMIN [Concomitant]
     Dosage: UNK UNK, QD
  3. HUMULIN N [INSULIN HUMAN] [Concomitant]
     Dosage: UNK UNK, BID

REACTIONS (4)
  - ABDOMINAL PAIN [None]
  - GASTROINTESTINAL DISORDER [None]
  - APHAGIA [None]
  - HAEMATEMESIS [None]
